FAERS Safety Report 22033627 (Version 1)
Quarter: 2023Q1

REPORT INFORMATION
  Report Type: Spontaneous
  Country: US (occurrence: None)
  Receive Date: 20230222
  Receipt Date: 20230222
  Transmission Date: 20230417
  Serious: Yes (Other)
  Sender: FDA-Public Use
  Company Number: None

PATIENT
  Age: 38 Year
  Sex: Male
  Weight: 96.75 kg

DRUGS (1)
  1. HUMIRA [Suspect]
     Active Substance: ADALIMUMAB
     Indication: Psoriasis
     Dosage: OTHER QUANTITY : 2 INJECTION(S);?OTHER FREQUENCY : TWICE A MONTH;?
     Route: 058
     Dates: start: 20230204, end: 20230218

REACTIONS (9)
  - Feeling abnormal [None]
  - Dizziness [None]
  - Disturbance in attention [None]
  - Headache [None]
  - Visual impairment [None]
  - Myalgia [None]
  - Movement disorder [None]
  - Memory impairment [None]
  - Job dissatisfaction [None]

NARRATIVE: CASE EVENT DATE: 20230220
